FAERS Safety Report 12071402 (Version 5)
Quarter: 2017Q4

REPORT INFORMATION
  Report Type: Report from Study
  Country: CA (occurrence: CA)
  Receive Date: 20160211
  Receipt Date: 20171114
  Transmission Date: 20180320
  Serious: Yes (Hospitalization, Other)
  Sender: FDA-Public Use
  Company Number: CA-ROCHE-1418822

PATIENT
  Age: 23 Year
  Sex: Male
  Weight: 81.6 kg

DRUGS (7)
  1. METHYLPREDNISOLONE. [Concomitant]
     Active Substance: METHYLPREDNISOLONE
     Route: 042
     Dates: start: 20131230
  2. ACETAMINOPHEN. [Concomitant]
     Active Substance: ACETAMINOPHEN
     Route: 048
     Dates: start: 20131230
  3. PREDNISONE. [Concomitant]
     Active Substance: PREDNISONE
     Route: 065
  4. RITUXAN [Suspect]
     Active Substance: RITUXIMAB
     Indication: POLYARTERITIS NODOSA
     Dosage: LAST RITUXAN INFUSION: 18/JUL/2014
     Route: 042
     Dates: start: 20131230
  5. WARFARIN [Concomitant]
     Active Substance: WARFARIN
  6. DIPHENHYDRAMINE. [Concomitant]
     Active Substance: DIPHENHYDRAMINE
     Route: 048
     Dates: start: 20131230
  7. LOSEC [Concomitant]
     Active Substance: OMEPRAZOLE

REACTIONS (15)
  - Dyspnoea [Recovered/Resolved]
  - Asthenia [Recovered/Resolved]
  - Dyspnoea [Unknown]
  - Polyarthritis [Recovering/Resolving]
  - Weight increased [Recovered/Resolved]
  - Headache [Unknown]
  - Yellow skin [Recovered/Resolved]
  - Arthralgia [Unknown]
  - Myalgia [Unknown]
  - Ear infection [Recovered/Resolved]
  - Headache [Unknown]
  - Pneumothorax [Unknown]
  - Off label use [Unknown]
  - Therapeutic response shortened [Unknown]
  - Skin papilloma [Not Recovered/Not Resolved]

NARRATIVE: CASE EVENT DATE: 2014
